FAERS Safety Report 24595916 (Version 1)
Quarter: 2024Q4

REPORT INFORMATION
  Report Type: Spontaneous
  Country: CA (occurrence: CA)
  Receive Date: 20241109
  Receipt Date: 20241109
  Transmission Date: 20250115
  Serious: Yes (Other)
  Sender: CELLTRION
  Company Number: CA-CELLTRION INC.-2024CA027263

PATIENT

DRUGS (15)
  1. RITUXIMAB [Suspect]
     Active Substance: RITUXIMAB
     Indication: Product used for unknown indication
     Dosage: UNK
  2. RITUXIMAB [Suspect]
     Active Substance: RITUXIMAB
     Indication: Rheumatoid arthritis
     Dosage: 1000 MILLIGRAM
     Route: 042
  3. RITUXIMAB [Suspect]
     Active Substance: RITUXIMAB
     Dosage: 1000 MILLIGRAM
     Route: 042
  4. RITUXIMAB [Suspect]
     Active Substance: RITUXIMAB
     Dosage: 1000 MILLIGRAM
     Route: 042
  5. RITUXIMAB [Suspect]
     Active Substance: RITUXIMAB
     Indication: Rheumatoid arthritis
     Dosage: 1000 MILLIGRAM
     Route: 042
  6. ACETAMINOPHEN [Concomitant]
     Active Substance: ACETAMINOPHEN
     Dosage: 500 MILLIGRAM, 1 EVERY 1 DAYS
     Route: 048
  7. BISOPROLOL [Concomitant]
     Active Substance: BISOPROLOL\BISOPROLOL FUMARATE
     Dosage: 1 DOSAGE FORM
  8. BISOPROLOL [Concomitant]
     Active Substance: BISOPROLOL\BISOPROLOL FUMARATE
     Dosage: 5 MILLIGRAM, 1 EVERY 1 DAYS
  9. CYCLOSPORINE [Concomitant]
     Active Substance: CYCLOSPORINE
     Dosage: 0.05 PERCENT, 2 EVERY 1 DAYS
  10. COVID-19 VACCINE [Concomitant]
     Indication: COVID-19 immunisation
     Dosage: UNK, SINGLE
  11. DILTIAZEM [Concomitant]
     Active Substance: DILTIAZEM
     Dosage: 180 MILLIGRAM
     Route: 065
  12. PNEUMOCOCCAL 13-VALENT CONJUGATE VACCINE [Concomitant]
     Active Substance: PNEUMOCOCCAL 13-VALENT CONJUGATE VACCINE
     Indication: Pneumococcal immunisation
     Dosage: UNK, SINGLE
  13. RAMIPRIL [Concomitant]
     Active Substance: RAMIPRIL
     Dosage: 1 DOSAGE FORM
  14. TYLENOL 8 HR ARTHRITIS PAIN [Concomitant]
     Active Substance: ACETAMINOPHEN
     Dosage: 1 DOSAGE FORM, AS REQUIRED
     Route: 065
  15. VARICELLA-ZOSTER VIRUS STRAIN OKA/MERCK LIVE ANTIGEN [Concomitant]
     Active Substance: VARICELLA-ZOSTER VIRUS STRAIN OKA/MERCK LIVE ANTIGEN
     Indication: Immunisation
     Dosage: UNK, SINGLE

REACTIONS (9)
  - Sjogren^s syndrome [Not Recovered/Not Resolved]
  - Rheumatoid arthritis [Not Recovered/Not Resolved]
  - Rheumatoid nodule [Not Recovered/Not Resolved]
  - Tooth disorder [Not Recovered/Not Resolved]
  - Elbow deformity [Not Recovered/Not Resolved]
  - Disease progression [Not Recovered/Not Resolved]
  - Eye injury [Not Recovered/Not Resolved]
  - Joint injury [Not Recovered/Not Resolved]
  - Blood pressure increased [Not Recovered/Not Resolved]
